FAERS Safety Report 9892735 (Version 1)
Quarter: 2014Q1

REPORT INFORMATION
  Report Type: Spontaneous
  Country: US (occurrence: US)
  Receive Date: 20140212
  Receipt Date: 20140212
  Transmission Date: 20141002
  Serious: Yes (Death)
  Sender: FDA-Public Use
  Company Number: US-ROCHE-1348901

PATIENT
  Age: 67 Year
  Sex: Male
  Weight: 69.01 kg

DRUGS (1)
  1. XELODA [Suspect]
     Indication: PANCREATIC CARCINOMA
     Dosage: 4 TABLETS TWICE DAILY
     Route: 048
     Dates: start: 20131119

REACTIONS (1)
  - Death [Fatal]
